FAERS Safety Report 10149425 (Version 1)
Quarter: 2014Q2

REPORT INFORMATION
  Report Type: Spontaneous
  Country: US (occurrence: None)
  Receive Date: 20140501
  Receipt Date: 20140501
  Transmission Date: 20141212
  Serious: No
  Sender: FDA-Public Use
  Company Number: None

PATIENT
  Age: 70 Year
  Sex: Male
  Weight: 81.65 kg

DRUGS (5)
  1. NEVANAC [Suspect]
     Indication: PREOPERATIVE CARE
     Dosage: 1 DROP, TWICE DAILY, IN THE EYE
     Dates: start: 20140326, end: 20140330
  2. MULTI VITAMINS-MINERALS [Concomitant]
  3. COQ10 [Concomitant]
  4. GLUCOSAMINE [Concomitant]
  5. CHONDROITIN/MSM [Concomitant]

REACTIONS (3)
  - Contusion [None]
  - Pain [None]
  - Swelling [None]
